FAERS Safety Report 22204445 (Version 1)
Quarter: 2023Q2

REPORT INFORMATION
  Report Type: Spontaneous
  Country: ES (occurrence: ES)
  Receive Date: 20230413
  Receipt Date: 20230413
  Transmission Date: 20230722
  Serious: Yes (Hospitalization, Other)
  Sender: FDA-Public Use
  Company Number: None

PATIENT
  Age: 60 Year
  Sex: Female

DRUGS (12)
  1. ENOXAPARIN SODIUM [Suspect]
     Active Substance: ENOXAPARIN SODIUM
     Indication: Pulmonary embolism
     Dosage: 90 MG, Q12H
     Route: 058
     Dates: start: 20221028, end: 20221101
  2. PAROXETINA AUROBINDO [PAROXETINE HYDROCHLORIDE] [Concomitant]
     Indication: Adjustment disorder
     Dosage: 20 MG, QD (28 TABLETS)
     Route: 048
     Dates: start: 20171012
  3. ESOMEPRAZOL SANDOZ [ESOMEPRAZOLE MAGNESIUM] [Concomitant]
     Indication: Gastritis
     Dosage: 20 MG, Q12H (28 TABLETS)
     Route: 048
     Dates: start: 20111222
  4. PROPRANOLOL HYDROCHLORIDE [Concomitant]
     Active Substance: PROPRANOLOL HYDROCHLORIDE
     Indication: Gastrooesophageal reflux disease
     Dosage: 10 MG, Q12H  (50 TABLETS)
     Route: 048
     Dates: start: 20140204
  5. CONDROSAN [Concomitant]
     Indication: Osteoarthritis
     Dosage: 800 MG, QD (60 CAPSULES)
     Route: 048
     Dates: start: 20221020
  6. PROPIVERINE HYDROCHLORIDE [Concomitant]
     Active Substance: PROPIVERINE HYDROCHLORIDE
     Indication: Urinary incontinence
     Dosage: 45 MG, QD (28 CAPSULES)
     Route: 048
     Dates: start: 20210408
  7. PARACETAMOL KERN [Concomitant]
     Indication: Product used for unknown indication
     Dosage: 1 G, Q8H (40 TABLETS)
     Route: 048
     Dates: start: 20221019
  8. CRESTOR [Concomitant]
     Active Substance: ROSUVASTATIN CALCIUM
     Indication: Hyperlipidaemia
     Dosage: 5 MG, QD  (28 TABLETS)
     Route: 048
     Dates: start: 20220714
  9. TIAPRIDE HYDROCHLORIDE [Concomitant]
     Active Substance: TIAPRIDE HYDROCHLORIDE
     Indication: Alcohol abuse
     Dosage: 100 MG, QD (24 TABLETS)
     Route: 048
     Dates: start: 20200805
  10. HYDROCHLOROTHIAZIDE\OLMESARTAN MEDOXOMIL [Concomitant]
     Active Substance: HYDROCHLOROTHIAZIDE\OLMESARTAN MEDOXOMIL
     Indication: Essential hypertension
     Dosage: 20 MG, QD
     Route: 048
     Dates: start: 20220507
  11. TRELEGY ELLIPTA [Concomitant]
     Active Substance: FLUTICASONE FUROATE\UMECLIDINIUM BROMIDE\VILANTEROL TRIFENATATE
     Indication: Bronchitis chronic
     Dosage: 1.0 PUFF C/24 H
     Dates: start: 20220927
  12. ALBUTEROL SULFATE [Concomitant]
     Active Substance: ALBUTEROL SULFATE
     Indication: Bronchitis chronic
     Dosage: 100 UG, QD
     Dates: start: 20190411

REACTIONS (1)
  - Retroperitoneal haematoma [Recovered/Resolved]

NARRATIVE: CASE EVENT DATE: 20221101
